FAERS Safety Report 13671547 (Version 1)
Quarter: 2017Q2

REPORT INFORMATION
  Report Type: Spontaneous
  Country: US (occurrence: US)
  Receive Date: 20170620
  Receipt Date: 20170620
  Transmission Date: 20170830
  Serious: No
  Sender: FDA-Public Use
  Company Number: US-ROCHE-1469785

PATIENT
  Sex: Female

DRUGS (1)
  1. XELODA [Suspect]
     Active Substance: CAPECITABINE
     Indication: PRODUCT USED FOR UNKNOWN INDICATION
     Dosage: 3AM/4PM - 7 DAYS ON, 7 DAYS OFF
     Route: 065
     Dates: start: 20140925

REACTIONS (2)
  - Fatigue [Unknown]
  - Pyrexia [Unknown]
